FAERS Safety Report 10434145 (Version 1)
Quarter: 2014Q3

REPORT INFORMATION
  Report Type: Spontaneous
  Country: US (occurrence: US)
  Receive Date: 20140905
  Receipt Date: 20140905
  Transmission Date: 20150326
  Serious: No
  Sender: FDA-Public Use
  Company Number: US-BAYER-2014-133035

PATIENT
  Age: 55 Year
  Sex: Female
  Weight: 117.91 kg

DRUGS (1)
  1. ALEVE [Suspect]
     Active Substance: NAPROXEN SODIUM
     Indication: ARTHRITIS
     Dosage: 4-6 DF, QD
     Route: 048

REACTIONS (2)
  - Incorrect drug administration duration [None]
  - Extra dose administered [None]
